FAERS Safety Report 8950426 (Version 1)
Quarter: 2012Q4

REPORT INFORMATION
  Report Type: Spontaneous
  Country: US (occurrence: None)
  Receive Date: 20121130
  Receipt Date: 20121130
  Transmission Date: 20130627
  Serious: Yes (Other)
  Sender: FDA-Public Use
  Company Number: None

PATIENT
  Age: 38 Year
  Sex: Male
  Weight: 90 kg

DRUGS (1)
  1. IMITREX [Suspect]

REACTIONS (4)
  - Sensation of heaviness [None]
  - Chest discomfort [None]
  - Migraine [None]
  - Memory impairment [None]
